FAERS Safety Report 7409969-4 (Version None)
Quarter: 2011Q2

REPORT INFORMATION
  Report Type: 
  Country: None (occurrence: None)
  Receive Date: 20110412
  Receipt Date: 20110405
  Transmission Date: 20111010
  Serious: Yes (Hospitalization)
  Sender: FDA-Public Use
  Company Number: GB-CEPHALON-2011001431

PATIENT
  Sex: Female

DRUGS (3)
  1. BENDAMUSTINE HCL [Suspect]
     Indication: MULTIPLE MYELOMA
     Route: 042
     Dates: start: 20110210, end: 20110317
  2. THALIDOMIDE [Suspect]
     Indication: MULTIPLE MYELOMA
     Route: 048
     Dates: start: 20110210, end: 20110321
  3. DEXAMETHASONE [Suspect]
     Indication: MULTIPLE MYELOMA
     Route: 048
     Dates: start: 20110210, end: 20110324

REACTIONS (1)
  - OTITIS EXTERNA [None]
